FAERS Safety Report 7375013-0 (Version None)
Quarter: 2011Q1

REPORT INFORMATION
  Report Type: 
  Country: None (occurrence: None)
  Receive Date: 20110325
  Receipt Date: 20110308
  Transmission Date: 20110831
  Serious: No
  Sender: FDA-Public Use
  Company Number: US-PFIZER INC-US-WYE-H12002809

PATIENT
  Sex: Male

DRUGS (9)
  1. PRISTIQ [Suspect]
     Indication: ANXIETY
     Dosage: 50.0 MG, 1X/DAY
     Route: 048
     Dates: start: 20081101
  2. LUNESTA [Suspect]
     Dosage: 2.0 MG, 1X/DAY
     Route: 048
     Dates: start: 20100601, end: 20100601
  3. KLONOPIN [Concomitant]
  4. DEPAKOTE [Concomitant]
  5. PRISTIQ [Suspect]
     Indication: DEPRESSION
  6. ATIVAN [Concomitant]
  7. LUNESTA [Suspect]
     Dosage: 4.0 MG, 1X/DAY
     Route: 048
     Dates: start: 20100601
  8. MELATONIN [Concomitant]
  9. MAGNESIUM CITRATE [Concomitant]

REACTIONS (9)
  - ANXIETY [None]
  - INSOMNIA [None]
  - AGITATION [None]
  - AKATHISIA [None]
  - ENERGY INCREASED [None]
  - CONDITION AGGRAVATED [None]
  - RESTLESSNESS [None]
  - DRUG INEFFECTIVE [None]
  - SOMNOLENCE [None]
